FAERS Safety Report 9295803 (Version 1)
Quarter: 2013Q1

REPORT INFORMATION
  Report Type: Spontaneous
  Country: US (occurrence: None)
  Receive Date: 20121227
  Receipt Date: 20121227
  Transmission Date: 20140127
  Serious: No
  Sender: FDA-Public Use
  Company Number: PHEH2012US023085

PATIENT
  Sex: Female

DRUGS (1)
  1. AFINITOR [Suspect]
     Route: 048
     Dates: start: 20121026

REACTIONS (5)
  - Pain in extremity [None]
  - Muscle spasms [None]
  - Burning sensation [None]
  - Paraesthesia [None]
  - Candida infection [None]
